FAERS Safety Report 16998170 (Version 1)
Quarter: 2019Q4

REPORT INFORMATION
  Report Type: Spontaneous
  Country: FR (occurrence: FR)
  Receive Date: 20191106
  Receipt Date: 20191106
  Transmission Date: 20200122
  Serious: Yes (Hospitalization, Other)
  Sender: FDA-Public Use
  Company Number: FR-AUROBINDO-AUR-APL-2019-070492

PATIENT
  Age: 75 Year
  Sex: Male
  Weight: 121 kg

DRUGS (1)
  1. AMOXICILLIN. [Suspect]
     Active Substance: AMOXICILLIN
     Indication: ENDOCARDITIS
     Dosage: 12 GRAM, ONCE A DAY
     Route: 042
     Dates: start: 20190913, end: 20191004

REACTIONS (5)
  - Anuria [Recovering/Resolving]
  - Renal tubular necrosis [Recovering/Resolving]
  - Overdose [Recovered/Resolved]
  - Crystal nephropathy [Recovering/Resolving]
  - Acute kidney injury [Recovering/Resolving]

NARRATIVE: CASE EVENT DATE: 20190927
